FAERS Safety Report 8817177 (Version 1)
Quarter: 2012Q4

REPORT INFORMATION
  Report Type: Spontaneous
  Country: US (occurrence: None)
  Receive Date: 20121003
  Receipt Date: 20121003
  Transmission Date: 20130627
  Serious: No
  Sender: FDA-Public Use
  Company Number: None

PATIENT
  Age: 64 Year
  Sex: Female
  Weight: 92.5 kg

DRUGS (16)
  1. LEVAQUIN [Suspect]
     Indication: PNEUMONIA
     Dosage: 500 mg, q24h, iv, 1x
     Route: 042
     Dates: start: 20120706
  2. BACTRAMIN [Concomitant]
  3. NICARDIPINE [Concomitant]
  4. ACETAMINOPHEN [Concomitant]
  5. MYLANTA [Concomitant]
  6. DULCOLAX [Concomitant]
  7. DIPHENHYDRAMINE [Concomitant]
  8. MILK OF MAGNESIUM [Concomitant]
  9. ONDANSETRON [Concomitant]
  10. PANTOPRAZOLE [Concomitant]
  11. INSULIN [Concomitant]
  12. HYDROMORPHINE [Concomitant]
  13. DUONEB [Concomitant]
  14. LORAZEPAM [Concomitant]
  15. METOPROLOL [Concomitant]
  16. ANCEF [Concomitant]

REACTIONS (3)
  - Rash [None]
  - Blister [None]
  - Erythema [None]
